FAERS Safety Report 7433376-1 (Version None)
Quarter: 2011Q2

REPORT INFORMATION
  Report Type: 
  Country: None (occurrence: None)
  Receive Date: 20110422
  Receipt Date: 20110411
  Transmission Date: 20111010
  Serious: Yes (Death, Hospitalization, Other)
  Sender: FDA-Public Use
  Company Number: DE-GENZYME-CAMP-1001385

PATIENT
  Sex: Female
  Weight: 73 kg

DRUGS (53)
  1. CAMPATH [Suspect]
     Dosage: 30 MG DOSE 3  OF CYCLE 1
     Route: 058
     Dates: start: 20080101, end: 20080101
  2. CAMPATH [Suspect]
     Dosage: 30 MG TWICE, CYCLE 4
     Route: 058
     Dates: start: 20090102, end: 20090101
  3. CAMPATH [Suspect]
     Dosage: 30 MG TWICE, CYCLE 5
     Route: 058
     Dates: start: 20090116, end: 20090101
  4. CYCLOPHOSPHAMIDE [Suspect]
     Dosage: 750 MG/M2, ONCE
     Route: 065
     Dates: start: 20081111, end: 20081111
  5. CYCLOPHOSPHAMIDE [Suspect]
     Dosage: 750 MG/M2, ONCE
     Route: 065
     Dates: start: 20090102, end: 20090102
  6. DOXORUBICIN [Suspect]
     Dosage: 50 MG/M2, ONCE
     Route: 065
     Dates: start: 20090102, end: 20090102
  7. FILGRASTIM [Concomitant]
     Dosage: 30 UNK, QD
     Route: 065
     Dates: start: 20090126, end: 20090130
  8. BELOC ZOK [Concomitant]
     Indication: HYPERTENSION
     Dosage: UNK, BID, MORNING AND EVENING
     Route: 065
  9. EUTHYROX [Concomitant]
     Dosage: 100 MG, 1/2 QD
     Route: 065
  10. DECORTIN [Concomitant]
     Indication: PRODUCT USED FOR UNKNOWN INDICATION
     Dosage: 100 MG, QD, MORNING
     Route: 065
     Dates: end: 20100417
  11. CAMPATH [Suspect]
     Dosage: 30 MG TWICE, CYCLE 2
     Route: 058
     Dates: start: 20081111, end: 20080101
  12. CYCLOPHOSPHAMIDE [Suspect]
     Dosage: 750 MG/M2, ONCE
     Route: 065
     Dates: start: 20090204, end: 20090204
  13. VINCRISTINE [Suspect]
     Dosage: 1.4 MG/M2, ONCE
     Route: 065
     Dates: start: 20081028, end: 20081028
  14. VINCRISTINE [Suspect]
     Dosage: 1.4 MG/M2, ONCE
     Route: 065
     Dates: start: 20090102, end: 20090102
  15. PREDNISONE [Suspect]
     Indication: PERIPHERAL T-CELL LYMPHOMA UNSPECIFIED
     Dosage: 100 MG, QDX7, PREPHASE
     Route: 065
     Dates: start: 20081014, end: 20081020
  16. PREDNISONE [Suspect]
     Dosage: 100 MG, QDX5
     Route: 065
     Dates: start: 20090102, end: 20090106
  17. LENOGRASTIM [Concomitant]
     Indication: PROPHYLAXIS
     Dosage: UNK
     Route: 065
     Dates: start: 20081031, end: 20081107
  18. FILGRASTIM [Concomitant]
     Indication: PROPHYLAXIS
     Dosage: 30 UNK, QD
     Route: 065
     Dates: start: 20081114, end: 20081128
  19. AMPHOTERICIN B [Concomitant]
     Indication: ORAL CANDIDIASIS
     Dosage: UNK
     Route: 065
  20. RED BLOOD CELLS [Concomitant]
     Indication: PRODUCT USED FOR UNKNOWN INDICATION
     Dosage: 2 U, UNK
     Route: 065
  21. CYCLOPHOSPHAMIDE [Suspect]
     Dosage: 750 MG/M2, ONCE
     Route: 065
     Dates: start: 20090116, end: 20090116
  22. DOXORUBICIN [Suspect]
     Indication: PERIPHERAL T-CELL LYMPHOMA UNSPECIFIED
     Dosage: 50 MG/M2, ONCE
     Route: 065
     Dates: start: 20081028, end: 20081028
  23. PREDNISONE [Suspect]
     Dosage: 100 MG, QDX5
     Route: 065
     Dates: start: 20081028, end: 20081101
  24. FILGRASTIM [Concomitant]
     Dosage: 30 UNK, QD
     Route: 065
     Dates: start: 20090208, end: 20090216
  25. CAMPATH [Suspect]
     Indication: PERIPHERAL T-CELL LYMPHOMA UNSPECIFIED
     Dosage: 10 MG DOSE 1 OF CYCLE 1
     Route: 058
     Dates: start: 20081028, end: 20081028
  26. CAMPATH [Suspect]
     Dosage: 20 MG DOSE 2 OF CYCLE 1
     Route: 058
     Dates: start: 20080101, end: 20080101
  27. CYCLOPHOSPHAMIDE [Suspect]
     Dosage: 750 MG/M2, ONCE
     Route: 065
     Dates: start: 20081211, end: 20081211
  28. DOXORUBICIN [Suspect]
     Dosage: 50 MG/M2, ONCE
     Route: 065
     Dates: start: 20090204, end: 20090204
  29. VINCRISTINE [Suspect]
     Indication: PERIPHERAL T-CELL LYMPHOMA UNSPECIFIED
     Dosage: PRE-PHASE, 1 MG
     Route: 065
     Dates: start: 20081014, end: 20081014
  30. VINCRISTINE [Suspect]
     Dosage: 1.4 MG/M2, ONCE
     Route: 065
     Dates: start: 20081111, end: 20081111
  31. PREDNISONE [Suspect]
     Dosage: 100 MG, QDX5
     Route: 065
     Dates: start: 20090116, end: 20090120
  32. PREDNISONE [Suspect]
     Dosage: 100 MG, QDX5
     Route: 065
     Dates: start: 20090204, end: 20090208
  33. FILGRASTIM [Concomitant]
     Dosage: 30 UNK, QD
     Route: 065
     Dates: start: 20090106, end: 20090113
  34. ACTRAPID [Concomitant]
     Indication: DIABETES MELLITUS
     Dosage: UNK
     Route: 065
  35. VALTREX [Concomitant]
     Indication: PRODUCT USED FOR UNKNOWN INDICATION
     Dosage: 500 MG, BOD
     Route: 065
  36. ENDOXAN [Concomitant]
     Indication: CHEMOTHERAPY
     Dosage: UNK
     Route: 065
     Dates: start: 20100301
  37. CYCLOPHOSPHAMIDE [Suspect]
     Indication: PERIPHERAL T-CELL LYMPHOMA UNSPECIFIED
     Dosage: 750 MG/M2, ONCE
     Route: 065
     Dates: start: 20081028, end: 20081028
  38. DOXORUBICIN [Suspect]
     Dosage: 50 MG/M2, ONCE
     Route: 065
     Dates: start: 20081211, end: 20081211
  39. DOXORUBICIN [Suspect]
     Dosage: 50 MG/M2, ONCE
     Route: 065
     Dates: start: 20090116, end: 20090116
  40. VINCRISTINE [Suspect]
     Dosage: 1.4 MG/M2, ONCE
     Route: 065
     Dates: start: 20081211, end: 20081211
  41. PREDNISONE [Suspect]
     Dosage: 100 MG, QDX5
     Route: 065
     Dates: start: 20081111, end: 20081115
  42. PREDNISONE [Suspect]
     Dosage: 100 MG, QDX5
     Route: 065
     Dates: start: 20081211, end: 20081215
  43. COTRIM FORTE EU RHO [Concomitant]
     Indication: PRODUCT USED FOR UNKNOWN INDICATION
     Dosage: UNK, MONDAY, WEDNESDAY, AND FRIDAY MORNING
     Route: 065
  44. DOXORUBICIN [Suspect]
     Dosage: 50 MG/M2, ONCE
     Route: 065
     Dates: start: 20081111, end: 20081111
  45. VINCRISTINE [Suspect]
     Dosage: 1.4 MG/M2, ONCE
     Route: 065
     Dates: start: 20090204, end: 20090204
  46. HYDROCHLOROTHIAZIDE [Concomitant]
     Indication: HYPERTENSION
     Dosage: 12.5 MG, UNK
     Route: 065
  47. SAROTEN [Concomitant]
     Indication: ANXIETY
     Dosage: UNK
     Route: 064
  48. PANTOZOL [Concomitant]
     Indication: GASTRITIS
     Dosage: 40 UNK, UNK
     Route: 065
  49. VINCRISTINE [Suspect]
     Dosage: 1.4 MG/M2, ONCE
     Route: 065
     Dates: start: 20090116, end: 20090116
  50. FILGRASTIM [Concomitant]
     Dosage: 30 UNK, QD
     Route: 065
     Dates: start: 20081214, end: 20081222
  51. VIANI [Concomitant]
     Indication: DYSPNOEA
     Dosage: UNK
     Route: 065
  52. FLUCONAZOLE [Concomitant]
     Indication: ORAL CANDIDIASIS
     Dosage: UNK
     Route: 065
  53. DELIX [Concomitant]
     Indication: PRODUCT USED FOR UNKNOWN INDICATION
     Dosage: 5 MG, BID, MORNING AND EVENING
     Route: 065

REACTIONS (27)
  - CARDIAC DISORDER [None]
  - PULMONARY EMBOLISM [None]
  - LEUKOENCEPHALOPATHY [None]
  - PYREXIA [None]
  - ANAEMIA [None]
  - STOMATITIS [None]
  - IMMUNOSUPPRESSION [None]
  - INFECTION [None]
  - EPSTEIN-BARR VIRUS ASSOCIATED LYMPHOPROLIFERATIVE DISORDER [None]
  - DEMENTIA [None]
  - MOOD ALTERED [None]
  - CONSTIPATION [None]
  - MUCOSAL INFLAMMATION [None]
  - EPSTEIN-BARR VIRUS INFECTION [None]
  - PARAESTHESIA [None]
  - GENERAL PHYSICAL HEALTH DETERIORATION [None]
  - DIARRHOEA [None]
  - DEEP VEIN THROMBOSIS [None]
  - PARONYCHIA [None]
  - VOMITING [None]
  - NAUSEA [None]
  - LYMPHADENOPATHY [None]
  - FUNGAL INFECTION [None]
  - FEBRILE NEUTROPENIA [None]
  - NEUTROPENIA [None]
  - GAMMA-GLUTAMYLTRANSFERASE INCREASED [None]
  - NOROVIRUS TEST POSITIVE [None]
